FAERS Safety Report 4386181-7 (Version None)
Quarter: 2004Q2

REPORT INFORMATION
  Report Type: 
  Country: None (occurrence: None)
  Receive Date: 20040622
  Receipt Date: 20040614
  Transmission Date: 20050107
  Serious: Yes (Hospitalization)
  Sender: FDA-Public Use
  Company Number: 2004003721

PATIENT
  Sex: Female

DRUGS (2)
  1. TAHOR (ATORVASTATIN) [Suspect]
     Indication: ILL-DEFINED DISORDER
     Dosage: ORAL
     Route: 048
     Dates: start: 20031113, end: 20031130
  2. BENFLUOREX (BENFLUOREX) [Concomitant]

REACTIONS (3)
  - ABDOMINAL PAIN [None]
  - FEELING DRUNK [None]
  - VERTIGO [None]
